FAERS Safety Report 6590253-6 (Version None)
Quarter: 2010Q1

REPORT INFORMATION
  Report Type: 
  Country: None (occurrence: None)
  Receive Date: 20100219
  Receipt Date: 20100208
  Transmission Date: 20100710
  Serious: Yes (Hospitalization, Other)
  Sender: FDA-Public Use
  Company Number: PHEH2007US15651

PATIENT
  Sex: Female

DRUGS (21)
  1. ZOMETA [Suspect]
     Dosage: UNK
     Route: 042
  2. REMICADE [Concomitant]
  3. MEGACE [Concomitant]
  4. CHEMOTHERAPEUTICS NOS [Concomitant]
  5. PERIDEX [Concomitant]
  6. KENALOG [Concomitant]
  7. PLAQUENIL [Concomitant]
  8. FOLIC ACID [Concomitant]
  9. VITAMIN B6 [Concomitant]
  10. CENTRUM [Concomitant]
  11. BABY ASPIRIN [Concomitant]
  12. ABRAXANE [Concomitant]
  13. METOPROLOL TARTRATE [Concomitant]
  14. TAMOXIFEN CITRATE [Concomitant]
  15. PREDNISONE [Concomitant]
  16. ZANTAC [Concomitant]
  17. FEMARA [Concomitant]
  18. CELEBREX [Concomitant]
  19. PAXIL [Concomitant]
  20. BLOOD AND RELATED PRODUCTS [Suspect]
  21. METHOTREXATE [Concomitant]

REACTIONS (24)
  - ANAEMIA [None]
  - ANXIETY [None]
  - APPENDICITIS [None]
  - ATRIAL FIBRILLATION [None]
  - BACK PAIN [None]
  - BREAST PROSTHESIS USER [None]
  - CARDIAC FAILURE CONGESTIVE [None]
  - CHRONIC OBSTRUCTIVE PULMONARY DISEASE [None]
  - DEFORMITY [None]
  - EMOTIONAL DISTRESS [None]
  - GAIT DISTURBANCE [None]
  - HEPATIC NEOPLASM MALIGNANT [None]
  - HORDEOLUM [None]
  - INFECTION [None]
  - KYPHOSIS [None]
  - LESION EXCISION [None]
  - NEPHROLITHIASIS [None]
  - OSTEONECROSIS [None]
  - PAIN [None]
  - PHYSICAL DISABILITY [None]
  - PLEURAL EFFUSION [None]
  - PNEUMONIA [None]
  - PULMONARY MASS [None]
  - SPINAL COLUMN STENOSIS [None]
